FAERS Safety Report 8477819-3 (Version None)
Quarter: 2012Q2

REPORT INFORMATION
  Report Type: 
  Country: None (occurrence: None)
  Receive Date: 20120629
  Receipt Date: 20120626
  Transmission Date: 20120825
  Serious: No
  Sender: FDA-Public Use
  Company Number: US-PFIZER INC-2012154030

PATIENT
  Sex: Female
  Weight: 51.247 kg

DRUGS (1)
  1. IBUPROFEN (ADVIL) [Suspect]
     Indication: BACK PAIN
     Dosage: UNK

REACTIONS (1)
  - ALOPECIA [None]
